FAERS Safety Report 24182056 (Version 2)
Quarter: 2024Q4

REPORT INFORMATION
  Report Type: Spontaneous
  Country: US (occurrence: US)
  Receive Date: 20240807
  Receipt Date: 20241211
  Transmission Date: 20250115
  Serious: No
  Sender: LUPIN
  Company Number: US-LUPIN PHARMACEUTICALS INC.-2024-07146

PATIENT

DRUGS (1)
  1. ALBUTEROL SULFATE [Suspect]
     Active Substance: ALBUTEROL SULFATE
     Indication: Hypersensitivity
     Dosage: 2 PUFFS AS NEEDED
     Dates: start: 20240625

REACTIONS (3)
  - Wrong technique in product usage process [Unknown]
  - Device malfunction [Unknown]
  - No adverse event [Unknown]
